FAERS Safety Report 5020533-7 (Version None)
Quarter: 2006Q2

REPORT INFORMATION
  Report Type: 
  Country: None (occurrence: None)
  Receive Date: 20060607
  Receipt Date: 20060607
  Transmission Date: 20061013
  Serious: Yes (Life-Threatening, Hospitalization, Disabling)
  Sender: FDA-Public Use
  Company Number: None

PATIENT
  Age: 41 Year
  Sex: Male
  Weight: 140 kg

DRUGS (1)
  1. MS CONTIN [Suspect]
     Indication: BACK PAIN
     Dosage: 300MG  ONCE PO
     Route: 048
     Dates: start: 20050830, end: 20050830

REACTIONS (4)
  - INCORRECT DOSE ADMINISTERED [None]
  - OVERDOSE [None]
  - RENAL FAILURE ACUTE [None]
  - RHABDOMYOLYSIS [None]
